FAERS Safety Report 13266124 (Version 2)
Quarter: 2017Q2

REPORT INFORMATION
  Report Type: Spontaneous
  Country: US (occurrence: US)
  Receive Date: 20170223
  Receipt Date: 20170508
  Transmission Date: 20170830
  Serious: Yes (Hospitalization)
  Sender: FDA-Public Use
  Company Number: US-TEVA-741741USA

PATIENT
  Sex: Female

DRUGS (2)
  1. BACLOFEN. [Suspect]
     Active Substance: BACLOFEN
     Route: 048
  2. LIORESAL [Suspect]
     Active Substance: BACLOFEN
     Indication: MUSCLE SPASTICITY
     Dosage: 2038.9 MICROGRAM DAILY;
     Route: 037
     Dates: start: 20161027

REACTIONS (4)
  - Decubitus ulcer [Unknown]
  - Pain [Unknown]
  - Wound [Unknown]
  - Asthenia [Unknown]
